FAERS Safety Report 7315673-3 (Version None)
Quarter: 2011Q1

REPORT INFORMATION
  Report Type: 
  Country: None (occurrence: None)
  Receive Date: 20110225
  Receipt Date: 20110215
  Transmission Date: 20110831
  Serious: Yes (Life-Threatening, Hospitalization)
  Sender: FDA-Public Use
  Company Number: NL-JNJFOC-20100607101

PATIENT
  Sex: Female
  Weight: 103 kg

DRUGS (19)
  1. REMICADE [Suspect]
     Route: 042
  2. REMICADE [Suspect]
     Route: 042
  3. EFFEXOR [Suspect]
     Indication: ILL-DEFINED DISORDER
  4. REMICADE [Suspect]
     Indication: COLITIS ULCERATIVE
     Route: 042
  5. REMICADE [Suspect]
     Route: 042
  6. REMICADE [Suspect]
     Route: 042
  7. REMICADE [Suspect]
     Route: 042
  8. REMICADE [Suspect]
     Route: 042
  9. REMICADE [Suspect]
     Route: 042
  10. REMICADE [Suspect]
     Route: 042
  11. UNSPECIFIED ANTIDEPRESSANTS [Suspect]
     Indication: ILL-DEFINED DISORDER
  12. REMICADE [Suspect]
     Route: 042
  13. REMICADE [Suspect]
     Route: 042
  14. REMICADE [Suspect]
     Route: 042
  15. NAPROXEN [Suspect]
     Indication: ILL-DEFINED DISORDER
     Dosage: AS NEEDED
  16. REMICADE [Suspect]
     Indication: ANKYLOSING SPONDYLITIS
     Route: 042
  17. REMICADE [Suspect]
     Route: 042
  18. METOPROLOL SUCCINATE [Concomitant]
  19. FLUVOXAMINE [Concomitant]

REACTIONS (6)
  - HERPES ZOSTER [None]
  - HEPATITIS [None]
  - HEPATIC FAILURE [None]
  - HEPATIC CIRRHOSIS [None]
  - NEURALGIA [None]
  - CYTOMEGALOVIRUS INFECTION [None]
